FAERS Safety Report 11910106 (Version 1)
Quarter: 2016Q1

REPORT INFORMATION
  Report Type: Spontaneous
  Country: US (occurrence: None)
  Receive Date: 20160111
  Receipt Date: 20160111
  Transmission Date: 20160526
  Serious: Yes (Life-Threatening)
  Sender: FDA-Public Use
  Company Number: None

PATIENT
  Age: 70 Year
  Sex: Male
  Weight: 78.2 kg

DRUGS (2)
  1. GLIPIZIDE. [Suspect]
     Active Substance: GLIPIZIDE
     Indication: DIABETES MELLITUS
     Route: 048
     Dates: start: 20151124, end: 20151209
  2. INSULIN [Suspect]
     Active Substance: INSULIN NOS
     Indication: DIABETES MELLITUS
     Dosage: 10 UNITS
     Route: 058
     Dates: start: 20120109, end: 20151209

REACTIONS (3)
  - Unresponsive to stimuli [None]
  - Hypoglycaemia [None]
  - Oxygen saturation decreased [None]

NARRATIVE: CASE EVENT DATE: 20151209
